FAERS Safety Report 8851102 (Version 4)
Quarter: 2013Q3

REPORT INFORMATION
  Report Type: Report from Study
  Country: US (occurrence: US)
  Receive Date: 20121019
  Receipt Date: 20130703
  Transmission Date: 20140515
  Serious: Yes (Life-Threatening, Other)
  Sender: FDA-Public Use
  Company Number: US-VERTEX PHARMACEUTICAL INC.-2012-023000

PATIENT
  Age: 49 Year
  Sex: Male
  Weight: 87 kg

DRUGS (4)
  1. VX-950 (TELAPREVIR) [Suspect]
     Indication: HEPATITIS C
     Dosage: 750 MG, TID
     Route: 048
     Dates: start: 20120608, end: 20120828
  2. PEGASYS [Suspect]
     Indication: HEPATITIS C
     Dosage: 180 ?G, QW
     Route: 058
     Dates: start: 20120608, end: 20121118
  3. RIBASPHERE [Suspect]
     Indication: HEPATITIS C
     Dosage: 600 MG, BID
     Route: 048
     Dates: start: 20120608, end: 20121118
  4. GINSENG [Concomitant]
     Indication: ASTHENIA
     Dosage: 900 MG, QD
     Route: 048

REACTIONS (3)
  - Swelling [Unknown]
  - Malaise [Not Recovered/Not Resolved]
  - Rash generalised [Not Recovered/Not Resolved]
